FAERS Safety Report 21686896 (Version 1)
Quarter: 2022Q4

REPORT INFORMATION
  Report Type: Spontaneous
  Country: US (occurrence: None)
  Receive Date: 20221205
  Receipt Date: 20221205
  Transmission Date: 20230113
  Serious: No
  Sender: FDA-Public Use
  Company Number: None

PATIENT
  Sex: Female

DRUGS (1)
  1. TREMFYA [Suspect]
     Active Substance: GUSELKUMAB
     Indication: Psoriatic arthropathy
     Dosage: 100MG EVERY 8 WEEKS SUBCUTANEOUS?
     Route: 058
     Dates: start: 20210831

REACTIONS (3)
  - Liquid product physical issue [None]
  - Product dose omission issue [None]
  - Device defective [None]
